FAERS Safety Report 10547514 (Version 1)
Quarter: 2014Q4

REPORT INFORMATION
  Report Type: Spontaneous
  Country: US (occurrence: US)
  Receive Date: 20141028
  Receipt Date: 20141028
  Transmission Date: 20150529
  Serious: No
  Sender: FDA-Public Use
  Company Number: US-BIOGENIDEC-2014BI110976

PATIENT
  Sex: Female

DRUGS (2)
  1. TECFIDERA [Suspect]
     Active Substance: DIMETHYL FUMARATE
     Indication: MULTIPLE SCLEROSIS
     Route: 048
     Dates: start: 20141003, end: 20141009
  2. TECFIDERA [Suspect]
     Active Substance: DIMETHYL FUMARATE
     Indication: MULTIPLE SCLEROSIS
     Route: 048
     Dates: start: 20141010

REACTIONS (15)
  - Fatigue [Not Recovered/Not Resolved]
  - Musculoskeletal disorder [Not Recovered/Not Resolved]
  - Nervous system disorder [Unknown]
  - General symptom [Unknown]
  - Ill-defined disorder [Unknown]
  - Nausea [Not Recovered/Not Resolved]
  - Memory impairment [Not Recovered/Not Resolved]
  - Diarrhoea [Unknown]
  - Mobility decreased [Not Recovered/Not Resolved]
  - White blood cell count decreased [Unknown]
  - Asthenia [Not Recovered/Not Resolved]
  - Apathy [Not Recovered/Not Resolved]
  - Headache [Unknown]
  - Gastric disorder [Not Recovered/Not Resolved]
  - Abdominal pain upper [Not Recovered/Not Resolved]
